FAERS Safety Report 14008417 (Version 1)
Quarter: 2017Q3

REPORT INFORMATION
  Report Type: Spontaneous
  Country: FR (occurrence: FR)
  Receive Date: 20170925
  Receipt Date: 20170925
  Transmission Date: 20171128
  Serious: Yes (Hospitalization)
  Sender: FDA-Public Use
  Company Number: FR-PFIZER INC-2017404109

PATIENT
  Age: 65 Year
  Sex: Female

DRUGS (9)
  1. SYMBICORT [Suspect]
     Active Substance: BUDESONIDE\FORMOTEROL FUMARATE DIHYDRATE
     Dosage: UNK
     Route: 055
  2. LYRICA [Concomitant]
     Active Substance: PREGABALIN
     Dosage: UNK
  3. AMLODIPINE BESILATE [Suspect]
     Active Substance: AMLODIPINE BESYLATE
     Indication: HYPERTENSION
     Dosage: 5 MG, 1X/DAY
     Route: 048
  4. LEVOTHYROX [Suspect]
     Active Substance: LEVOTHYROXINE
     Indication: THYROIDECTOMY
     Dosage: 75 UG, 1X/DAY (5 DAYS PER WEEK)
     Route: 048
  5. LEVOTHYROX [Suspect]
     Active Substance: LEVOTHYROXINE
     Dosage: 100 UG, 1X/DAY (2 DAYS PER WEEK)
     Route: 048
  6. LETROZOLE. [Suspect]
     Active Substance: LETROZOLE
     Indication: BREAST CANCER
     Dosage: 2.5 MG, 1X/DAY
     Route: 048
     Dates: end: 20170814
  7. NOCTAMIDE [Suspect]
     Active Substance: LORMETAZEPAM
     Dosage: 2 MG, 1X/DAY
     Route: 048
  8. MOVICOL [Concomitant]
     Active Substance: POLYETHYLENE GLYCOL 3350\POTASSIUM CHLORIDE\SODIUM BICARBONATE\SODIUM CHLORIDE
     Dosage: UNK
  9. XANAX [Suspect]
     Active Substance: ALPRAZOLAM
     Indication: ANXIETY
     Dosage: 1 MG, 1X/DAY
     Route: 048

REACTIONS (1)
  - Cavernous sinus thrombosis [Recovering/Resolving]

NARRATIVE: CASE EVENT DATE: 20170807
